FAERS Safety Report 14047840 (Version 1)
Quarter: 2017Q4

REPORT INFORMATION
  Report Type: Spontaneous
  Country: US (occurrence: US)
  Receive Date: 20171005
  Receipt Date: 20171005
  Transmission Date: 20180321
  Serious: Yes (Life-Threatening, Hospitalization, Disabling)
  Sender: FDA-Public Use
  Company Number: None

PATIENT
  Age: 46 Year
  Sex: Male
  Weight: 106.4 kg

DRUGS (2)
  1. RIVAROXABAN [Suspect]
     Active Substance: RIVAROXABAN
     Indication: ATRIAL FIBRILLATION
     Route: 048
     Dates: start: 20150615, end: 20170913
  2. DILTAIZEM [Concomitant]

REACTIONS (7)
  - Blood pressure increased [None]
  - Haemorrhage [None]
  - Brain midline shift [None]
  - Confusional state [None]
  - Dysarthria [None]
  - Hyperbilirubinaemia [None]
  - Dysphagia [None]

NARRATIVE: CASE EVENT DATE: 20170914
